FAERS Safety Report 10617125 (Version 1)
Quarter: 2014Q4

REPORT INFORMATION
  Report Type: Other
  Country: DE (occurrence: DE)
  Receive Date: 20141201
  Receipt Date: 20141201
  Transmission Date: 20150529
  Serious: Yes (Death, Congenital Anomaly)
  Sender: FDA-Public Use
  Company Number: DE-MYLANLABS-2014M1012053

PATIENT

DRUGS (13)
  1. PROGRAF [Suspect]
     Active Substance: TACROLIMUS\TACROLIMUS ANHYDROUS
     Indication: PROPHYLAXIS AGAINST TRANSPLANT REJECTION
     Dosage: ; 5.5 [MG/D (3-0-2.5 MG/D) ]/ SINCE 2007UNK
     Route: 064
     Dates: start: 20130702, end: 20140114
  2. DEKRISTOL 20000 I.E. [Concomitant]
     Indication: VITAMIN SUPPLEMENTATION
     Dosage: 20000 [I.E./WK ]/ SINCE 2007
     Route: 064
     Dates: start: 20130702, end: 20131217
  3. METOPROLOL SUCCINATE. [Suspect]
     Active Substance: METOPROLOL SUCCINATE
     Indication: RENAL HYPERTENSION
     Dosage: 142.5 [MG/D (95-0-47.5) ]/ SINCE 2012. THERAPY PROBABLY ONGOING OR CHANGED TO BELOC ZOK MITE
     Route: 064
     Dates: start: 20130702, end: 20131217
  4. AMLODIPINE [Concomitant]
     Active Substance: AMLODIPINE BESYLATE
     Indication: RENAL HYPERTENSION
     Dosage: 7.5 [MG/D (2.5-0-5) ]
     Route: 064
  5. DAS GESUNDE PLUS - FOLS?URE 600 [Concomitant]
     Indication: PROPHYLAXIS OF NEURAL TUBE DEFECT
     Dosage: 0.6 [MG/D ]
     Route: 064
     Dates: start: 20130702, end: 20131217
  6. L-THYROXIN 25 HENNING [Concomitant]
     Indication: HYPOTHYROIDISM
     Dosage: 25 [?G/D (BIS 12.5) ]
     Route: 064
     Dates: start: 20130702, end: 20140114
  7. AZATHIOPRINE. [Suspect]
     Active Substance: AZATHIOPRINE
     Indication: PROPHYLAXIS AGAINST TRANSPLANT REJECTION
     Dosage: 100 [MG/D (BIS 50) ]/ SINCE 2012. DOSAGE WAS INCREASED DURING PREGNANCY FROM 50 TO 100 MG/D
     Route: 064
     Dates: start: 20130702, end: 20140114
  8. BELOC-ZOK MITE [Concomitant]
     Active Substance: METOPROLOL SUCCINATE
     Indication: RENAL HYPERTENSION
     Dosage: 70.75 [MG/D (47.5-0-23.75) ]/ SINCE WHEN?. PROBABLY THERAPY STARTED EARLIER.
     Route: 064
     Dates: start: 20140114, end: 20140114
  9. BETAMETHASONE [Concomitant]
     Active Substance: BETAMETHASONE
     Indication: MATERNAL THERAPY TO ENHANCE FOETAL LUNG MATURITY
     Dosage: IN WEEK 25+3, 25+4 AND AGAIN IN WEEK 28+0
     Route: 064
  10. PARTUSISTEN [Concomitant]
     Active Substance: FENOTEROL
     Indication: TOCOLYSIS
     Route: 064
     Dates: start: 20140114, end: 20140114
  11. ADALAT [Concomitant]
     Active Substance: NIFEDIPINE
     Indication: TOCOLYSIS
     Dosage: UNK
     Route: 064
  12. AMPICILLIN [Concomitant]
     Active Substance: AMPICILLIN
     Indication: ANTIBIOTIC PROPHYLAXIS
     Route: 064
     Dates: start: 20140114, end: 20140114
  13. METHYLDOPA. [Suspect]
     Active Substance: METHYLDOPA
     Indication: RENAL HYPERTENSION
     Dosage: 500 [MG/D (2 X 250) ]/ SINCE 2010
     Route: 064
     Dates: start: 20130702, end: 20140114

REACTIONS (4)
  - Hydrops foetalis [Not Recovered/Not Resolved]
  - Congenital cystic lung [Fatal]
  - Death neonatal [Not Recovered/Not Resolved]
  - Foetal exposure during pregnancy [Unknown]

NARRATIVE: CASE EVENT DATE: 20140114
